FAERS Safety Report 9502444 (Version 1)
Quarter: 2013Q3

REPORT INFORMATION
  Report Type: Spontaneous
  Country: US (occurrence: US)
  Receive Date: 20130906
  Receipt Date: 20130906
  Transmission Date: 20140515
  Serious: No
  Sender: FDA-Public Use
  Company Number: US-009507513-1309USA001765

PATIENT
  Age: 36 Year
  Sex: Female

DRUGS (3)
  1. FOLLISTIM [Suspect]
     Indication: IN VITRO FERTILISATION
     Dosage: UNK
     Dates: start: 20130803, end: 20130824
  2. PROGESTERONE [Suspect]
  3. BRAVELLE [Suspect]
     Dosage: PATCH

REACTIONS (1)
  - Urticaria [Not Recovered/Not Resolved]
